FAERS Safety Report 24737684 (Version 2)
Quarter: 2025Q1

REPORT INFORMATION
  Report Type: Spontaneous
  Country: US (occurrence: US)
  Receive Date: 20241216
  Receipt Date: 20250220
  Transmission Date: 20250409
  Serious: Yes (Death)
  Sender: Kenvue
  Company Number: US-JOHNSON + JOHNSON KOREA S+D LLC-20171234031

PATIENT

DRUGS (1)
  1. TYLENOL [Suspect]
     Active Substance: ACETAMINOPHEN
     Indication: Product used for unknown indication
     Route: 065

REACTIONS (2)
  - Overdose [Fatal]
  - Product dispensing error [Fatal]
